FAERS Safety Report 8798605 (Version 1)
Quarter: 2012Q4

REPORT INFORMATION
  Report Type: Report from Study
  Country: JP (occurrence: JP)
  Receive Date: 20120920
  Receipt Date: 20120920
  Transmission Date: 20130627
  Serious: Yes (Other)
  Sender: FDA-Public Use
  Company Number: JP-VERTEX PHARMACEUTICAL INC.-AE-2012-007687

PATIENT
  Age: 61 Year
  Sex: Male

DRUGS (17)
  1. VX-950 [Suspect]
     Indication: HEPATITIS C
     Dosage: 1500 mg, qd
     Route: 048
     Dates: start: 20120313, end: 20120605
  2. RIBAVIRIN [Suspect]
     Indication: HEPATITIS C
     Dosage: 600 mg, qd
     Route: 048
     Dates: start: 20120313, end: 20120410
  3. RIBAVIRIN [Suspect]
     Dosage: 200 mg, qd
     Route: 048
     Dates: start: 20120411, end: 20120415
  4. RIBAVIRIN [Suspect]
     Dosage: 400 mg, qd
     Route: 048
     Dates: start: 20120416
  5. RIBAVIRIN [Suspect]
     Dosage: 200 mg, qd
     Route: 048
     Dates: start: 20120502
  6. RIBAVIRIN [Suspect]
     Dosage: 400 mg, qd
     Route: 048
     Dates: end: 20120729
  7. RIBAVIRIN [Suspect]
     Dosage: 600 mg, qd
     Route: 048
     Dates: start: 20120730, end: 20120820
  8. PEGINTERFERON ALFA-2B [Suspect]
     Indication: HEPATITIS C
     Dosage: 1.5 ?g/kg, UNK
     Route: 058
     Dates: start: 20120313, end: 20120820
  9. LIVALO [Concomitant]
     Dosage: 2 mg, qd
     Route: 048
  10. LIVALO [Concomitant]
     Dosage: UNK
     Route: 048
  11. EPADEL                             /01682401/ [Concomitant]
     Dosage: 1800 mg, qd
     Route: 048
  12. EPADEL                             /01682401/ [Concomitant]
     Dosage: UNK
     Route: 048
  13. FEROTYM [Concomitant]
     Dosage: 100 mg, qd
     Route: 048
  14. FEROTYM [Concomitant]
     Dosage: UNK
     Route: 048
  15. CLARITIN REDITABS [Concomitant]
     Dosage: 10 mg, qd
     Route: 048
  16. CLARITIN REDITABS [Concomitant]
     Dosage: UNK
     Route: 048
  17. ALOSENN                            /00476901/ [Concomitant]
     Dosage: 0.5 g, qd
     Route: 048

REACTIONS (5)
  - Rash [Recovered/Resolved]
  - Anaemia [Not Recovered/Not Resolved]
  - Anaemia [Not Recovered/Not Resolved]
  - Anaemia [Not Recovered/Not Resolved]
  - Platelet count decreased [Recovered/Resolved]
